FAERS Safety Report 6430347-9 (Version None)
Quarter: 2009Q4

REPORT INFORMATION
  Report Type: 
  Country: None (occurrence: None)
  Receive Date: 20091106
  Receipt Date: 20091029
  Transmission Date: 20100525
  Serious: Yes (Death, Other)
  Sender: FDA-Public Use
  Company Number: IT-GENENTECH-293071

PATIENT

DRUGS (5)
  1. MABTHERA [Suspect]
     Indication: WALDENSTROM'S MACROGLOBULINAEMIA
     Dosage: 375 MG/M2, UNK
     Route: 042
  2. FLUDARABINE [Suspect]
     Indication: WALDENSTROM'S MACROGLOBULINAEMIA
     Dosage: 25 MG/M2, UNK
     Route: 042
  3. CYCLOPHOSPHAMIDE [Suspect]
     Indication: WALDENSTROM'S MACROGLOBULINAEMIA
     Dosage: 250 MG/M2, UNK
     Route: 042
  4. COTRIM [Suspect]
     Indication: INFECTION PROPHYLAXIS
     Dosage: 800 MG, 3/WEEK
     Route: 065
  5. ACYCLOVIR [Suspect]
     Indication: INFECTION PROPHYLAXIS
     Dosage: 800 MG, UNK
     Route: 065

REACTIONS (4)
  - ASPERGILLOSIS [None]
  - NEUTROPENIA [None]
  - PNEUMONITIS [None]
  - PYREXIA [None]
